FAERS Safety Report 6596473-9 (Version None)
Quarter: 2010Q1

REPORT INFORMATION
  Report Type: 
  Country: None (occurrence: None)
  Receive Date: 20100222
  Receipt Date: 20100222
  Transmission Date: 20100710
  Serious: Yes (Hospitalization)
  Sender: FDA-Public Use
  Company Number: None

PATIENT
  Age: 84 Year
  Sex: Male
  Weight: 68.9 kg

DRUGS (2)
  1. DIAZEPAM TAB [Suspect]
     Indication: ANXIETY
     Dosage: 10 MG PRN PO
     Route: 048
     Dates: start: 20091027, end: 20091029
  2. OXYCODONE HCL [Suspect]
     Indication: PAIN
     Dosage: 5 MG PRN PO
     Route: 048
     Dates: start: 20091027, end: 20091029

REACTIONS (4)
  - CONFUSIONAL STATE [None]
  - DELIRIUM [None]
  - FALL [None]
  - HALLUCINATION, VISUAL [None]
